FAERS Safety Report 6343290-0 (Version None)
Quarter: 2009Q3

REPORT INFORMATION
  Report Type: 
  Country: None (occurrence: None)
  Receive Date: 20090908
  Receipt Date: 20090828
  Transmission Date: 20100115
  Serious: Yes (Hospitalization, Disabling, Other)
  Sender: FDA-Public Use
  Company Number: PHEH2009US10112

PATIENT
  Sex: Female

DRUGS (10)
  1. EXJADE [Suspect]
     Indication: IRON OVERLOAD
     Dosage: 750 MG DAILY
     Route: 048
     Dates: start: 20090818
  2. EXJADE [Suspect]
     Dosage: 500 MG DAILY
  3. EXJADE [Suspect]
     Dosage: 250 MG DIALY
  4. AMBIEN [Concomitant]
     Indication: SLEEP DISORDER
     Dosage: 5 MG, PRN
     Route: 048
  5. ATIVAN [Concomitant]
     Indication: NAUSEA
     Dosage: 1 MG Q4H PRN
     Route: 048
  6. CLINDAMYCIN [Concomitant]
     Dosage: 300 MG, Q6H
     Route: 048
  7. LASIX [Concomitant]
     Dosage: 40 MG PO AS DIRECTED
     Route: 048
  8. LEXAPRO [Concomitant]
     Dosage: 10 MG, QD
     Route: 048
  9. POTASSIUM CHLORIDE [Concomitant]
     Dosage: 10 MEQ, UNK
     Route: 048
  10. VALTREX [Concomitant]
     Dosage: 1000 MG, TID
     Route: 048

REACTIONS (5)
  - COUGH [None]
  - DIARRHOEA [None]
  - HEADACHE [None]
  - NAUSEA [None]
  - VOMITING [None]
